FAERS Safety Report 9099135 (Version 2)
Quarter: 2013Q1

REPORT INFORMATION
  Report Type: Spontaneous
  Country: US (occurrence: US)
  Receive Date: 20130214
  Receipt Date: 20130222
  Transmission Date: 20140127
  Serious: Yes (Other)
  Sender: FDA-Public Use
  Company Number: US-009507513-1302USA001004

PATIENT
  Age: 19 Year
  Sex: Female
  Weight: 96.6 kg

DRUGS (3)
  1. IMPLANON [Suspect]
     Indication: CONTRACEPTION
     Dosage: UNK
     Route: 059
     Dates: start: 20110817, end: 20111228
  2. IRON (UNSPECIFIED) [Concomitant]
  3. VITAMINS (UNSPECIFIED) [Concomitant]

REACTIONS (4)
  - Caesarean section [Unknown]
  - Exposure during pregnancy [Recovered/Resolved]
  - Premature delivery [Unknown]
  - Adverse event [Unknown]
